FAERS Safety Report 20516008 (Version 6)
Quarter: 2025Q1

REPORT INFORMATION
  Report Type: Report from Study
  Country: DE (occurrence: DE)
  Receive Date: 20220225
  Receipt Date: 20250128
  Transmission Date: 20250409
  Serious: No
  Sender: ROCHE
  Company Number: DE-ROCHE-2998800

PATIENT
  Age: 54 Year
  Sex: Female

DRUGS (9)
  1. OCREVUS [Suspect]
     Active Substance: OCRELIZUMAB
     Indication: Relapsing-remitting multiple sclerosis
     Dosage: 600 MG
     Route: 040
     Dates: start: 20211119, end: 20230810
  2. TORSEMIDE [Concomitant]
     Active Substance: TORSEMIDE
  3. AMITRIPTYLINE [Concomitant]
     Active Substance: AMITRIPTYLINE
  4. AMLODIPINE [Concomitant]
     Active Substance: AMLODIPINE BESYLATE
  5. CANDESARTAN [Concomitant]
     Active Substance: CANDESARTAN
  6. BISOPROLOL [Concomitant]
     Active Substance: BISOPROLOL
  7. LEVOTHYROXINE [Concomitant]
     Active Substance: LEVOTHYROXINE
  8. VITAMIN D3 [Concomitant]
     Active Substance: CHOLECALCIFEROL
  9. BISOPROLOL [Concomitant]
     Active Substance: BISOPROLOL

REACTIONS (11)
  - Headache [Recovered/Resolved]
  - Burning sensation [Recovered/Resolved]
  - Sensitive skin [Recovered/Resolved]
  - Herpes zoster [Recovered/Resolved]
  - Eye swelling [Recovered/Resolved]
  - Paraesthesia oral [Recovered/Resolved]
  - Dysphagia [Recovered/Resolved]
  - Sensory disturbance [Not Recovered/Not Resolved]
  - Gait disturbance [Recovered/Resolved]
  - Blood immunoglobulin G decreased [Recovering/Resolving]
  - Limb discomfort [Recovered/Resolved]

NARRATIVE: CASE EVENT DATE: 20211119
